FAERS Safety Report 5480729-7 (Version None)
Quarter: 2007Q4

REPORT INFORMATION
  Report Type: 
  Country: None (occurrence: None)
  Receive Date: 20071003
  Receipt Date: 20070918
  Transmission Date: 20080405
  Serious: Yes (Other)
  Sender: FDA-Public Use
  Company Number: L07-USA-05267-01

PATIENT
  Age: 11 Year
  Sex: Male

DRUGS (6)
  1. CITALOPRAM HYDROBROMIDE [Suspect]
     Indication: ANXIETY
  2. CITALOPRAM HYDROBROMIDE [Suspect]
     Indication: HALLUCINATION, AUDITORY
  3. CITALOPRAM HYDROBROMIDE [Suspect]
     Indication: MYOCLONUS
  4. CITALOPRAM HYDROBROMIDE [Suspect]
     Indication: OBSESSIVE THOUGHTS
  5. CITALOPRAM HYDROBROMIDE [Suspect]
     Indication: PANIC DISORDER
  6. CITALOPRAM HYDROBROMIDE [Suspect]
     Indication: TIC

REACTIONS (3)
  - DYSKINESIA [None]
  - EXCESSIVE EYE BLINKING [None]
  - REPETITIVE SPEECH [None]
